FAERS Safety Report 7124344-8 (Version None)
Quarter: 2010Q4

REPORT INFORMATION
  Report Type: 
  Country: None (occurrence: None)
  Receive Date: 20101126
  Receipt Date: 20101122
  Transmission Date: 20110411
  Serious: Yes (Other)
  Sender: FDA-Public Use
  Company Number: CHPA2010US18121

PATIENT
  Age: 73 Year
  Sex: Female

DRUGS (1)
  1. VOLTAREN [Suspect]
     Indication: MENISCUS LESION
     Dosage: 4 G, QID
     Route: 061
     Dates: start: 20101007, end: 20101101

REACTIONS (2)
  - OFF LABEL USE [None]
  - POSTMENOPAUSAL HAEMORRHAGE [None]
